FAERS Safety Report 22137697 (Version 2)
Quarter: 2023Q2

REPORT INFORMATION
  Report Type: Spontaneous
  Country: US (occurrence: None)
  Receive Date: 20230325
  Receipt Date: 20230521
  Transmission Date: 20230721
  Serious: No
  Sender: FDA-Public Use
  Company Number: 2023A060155

PATIENT
  Sex: Male
  Weight: 79.4 kg

DRUGS (3)
  1. BREZTRI [Suspect]
     Active Substance: BUDESONIDE\FORMOTEROL\GLYCOPYRROLATE
     Indication: Asthma
     Dosage: 160MCG/9MCG/4.8MCG BREZTRI, 2 PUFFS TWICE DAILY
     Route: 055
     Dates: start: 202212
  2. BREZTRI [Suspect]
     Active Substance: BUDESONIDE\FORMOTEROL\GLYCOPYRROLATE
     Indication: Multiple allergies
     Dosage: 160MCG/9MCG/4.8MCG BREZTRI, 2 PUFFS TWICE DAILY
     Route: 055
     Dates: start: 202212
  3. BREZTRI [Suspect]
     Active Substance: BUDESONIDE\FORMOTEROL\GLYCOPYRROLATE
     Indication: Lung disorder
     Dosage: 160MCG/9MCG/4.8MCG BREZTRI, 2 PUFFS TWICE DAILY
     Route: 055
     Dates: start: 202212

REACTIONS (5)
  - Product dose omission issue [Unknown]
  - Wrong technique in device usage process [Unknown]
  - Product use issue [Unknown]
  - Device use issue [Unknown]
  - Device malfunction [Unknown]
